FAERS Safety Report 17676097 (Version 1)
Quarter: 2020Q2

REPORT INFORMATION
  Report Type: Report from Study
  Country: ES (occurrence: ES)
  Receive Date: 20200416
  Receipt Date: 20200416
  Transmission Date: 20200714
  Serious: Yes (Other)
  Sender: FDA-Public Use
  Company Number: ES-TEVA-2020-ES-1224370

PATIENT
  Age: 1 Year
  Sex: Male
  Weight: 8.75 kg

DRUGS (4)
  1. TIOTEPA (747A) [Suspect]
     Active Substance: THIOTEPA
     Indication: CONGENITAL APLASTIC ANAEMIA
     Route: 065
     Dates: start: 20190919
  2. FLUDARABINE [Suspect]
     Active Substance: FLUDARABINE PHOSPHATE
     Indication: CONGENITAL APLASTIC ANAEMIA
     Route: 065
     Dates: start: 20190919
  3. INMUNOGLOBULINA CABALLO ANTITIMOCITOS HUMANOS (53A) (IMMUNOGLOBULIN HUMAN NORMAL) [Suspect]
     Active Substance: EQUINE THYMOCYTE IMMUNE GLOBULIN
     Indication: CONGENITAL APLASTIC ANAEMIA
     Route: 065
     Dates: start: 20190919
  4. TREOSULFANO (1526A) [Suspect]
     Active Substance: TREOSULFAN
     Indication: CONGENITAL APLASTIC ANAEMIA
     Route: 065
     Dates: start: 20190919

REACTIONS (1)
  - Hepatitis [Recovered/Resolved]

NARRATIVE: CASE EVENT DATE: 20190920
